FAERS Safety Report 15190834 (Version 2)
Quarter: 2018Q3

REPORT INFORMATION
  Report Type: Report from Study
  Country: IN (occurrence: IN)
  Receive Date: 20180724
  Receipt Date: 20180831
  Transmission Date: 20181010
  Serious: Yes (Hospitalization)
  Sender: FDA-Public Use
  Company Number: PHHY2017IN079976

PATIENT
  Age: 30 Year
  Sex: Male

DRUGS (5)
  1. SCAPHO [Suspect]
     Active Substance: SECUKINUMAB
     Dosage: 300 MG, UNK
     Route: 058
     Dates: start: 20170528
  2. SCAPHO [Suspect]
     Active Substance: SECUKINUMAB
     Indication: PSORIASIS
     Dosage: 300 MG, QW
     Route: 058
     Dates: start: 20170501
  3. SCAPHO [Suspect]
     Active Substance: SECUKINUMAB
     Dosage: UNK, QW
     Route: 058
     Dates: start: 20180728
  4. SCAPHO [Suspect]
     Active Substance: SECUKINUMAB
     Dosage: 300 MG, QW
     Route: 058
     Dates: start: 20180701
  5. SCAPHO [Suspect]
     Active Substance: SECUKINUMAB
     Dosage: 300 MG, QW
     Route: 058
     Dates: start: 20180708

REACTIONS (5)
  - Headache [Recovered/Resolved]
  - Psoriasis [Unknown]
  - Hepatomegaly [Recovered/Resolved]
  - Arthralgia [Recovered/Resolved]
  - Hepatic function abnormal [Unknown]

NARRATIVE: CASE EVENT DATE: 20170519
